FAERS Safety Report 5195256-4 (Version None)
Quarter: 2006Q4

REPORT INFORMATION
  Report Type: 
  Country: None (occurrence: None)
  Receive Date: 20061229
  Receipt Date: 20061114
  Transmission Date: 20070319
  Serious: Yes (Congenital Anomaly, Other)
  Sender: FDA-Public Use
  Company Number: US-PFIZER INC-2006142321

PATIENT
  Sex: Male
  Weight: 1.9 kg

DRUGS (8)
  1. DEPO-PROVERA [Suspect]
     Indication: OVARIAN CYST
     Route: 064
     Dates: start: 20051027, end: 20051027
  2. DEPO-PROVERA [Suspect]
     Route: 064
     Dates: start: 20060119, end: 20060119
  3. AMITRIPTYLINE HCL [Concomitant]
  4. FROVA [Concomitant]
  5. VITAMIN CAP [Concomitant]
  6. CALCIUM [Concomitant]
  7. GLUCOSAMINE [Concomitant]
  8. VITAMIN E [Concomitant]

REACTIONS (5)
  - CAESAREAN SECTION [None]
  - DRUG EXPOSURE DURING PREGNANCY [None]
  - LETHARGY [None]
  - PRADER-WILLI SYNDROME [None]
  - UNRESPONSIVE TO STIMULI [None]
